APPROVED DRUG PRODUCT: OXYBUTYNIN CHLORIDE
Active Ingredient: OXYBUTYNIN CHLORIDE
Strength: 10MG
Dosage Form/Route: TABLET, EXTENDED RELEASE;ORAL
Application: A078503 | Product #002 | TE Code: AB
Applicant: OSMOTICA PHARMACEUTICAL US LLC
Approved: Feb 4, 2009 | RLD: No | RS: No | Type: RX